FAERS Safety Report 24056567 (Version 1)
Quarter: 2024Q3

REPORT INFORMATION
  Report Type: Other
  Country: JP (occurrence: JP)
  Receive Date: 20240705
  Receipt Date: 20240705
  Transmission Date: 20241017
  Serious: Yes (Other)
  Sender: AIRGAS
  Company Number: JP-ALSI-2024000196

PATIENT
  Age: 40 Year
  Sex: Male

DRUGS (2)
  1. OXYGEN [Suspect]
     Active Substance: OXYGEN
     Indication: Product used for unknown indication
     Route: 055
  2. NITRIC OXIDE [Concomitant]
     Active Substance: NITRIC OXIDE
     Route: 055

REACTIONS (3)
  - Interstitial lung disease [Unknown]
  - Pneumothorax [Unknown]
  - Pneumomediastinum [Unknown]
